FAERS Safety Report 12267893 (Version 5)
Quarter: 2018Q3

REPORT INFORMATION
  Report Type: Report from Study
  Country: US (occurrence: US)
  Receive Date: 20160414
  Receipt Date: 20180824
  Transmission Date: 20181010
  Serious: Yes (Other)
  Sender: FDA-Public Use
  Company Number: PHHY2016US048053

PATIENT
  Age: 39 Year
  Sex: Female

DRUGS (1)
  1. GILENYA [Suspect]
     Active Substance: FINGOLIMOD HYDROCHLORIDE
     Indication: MULTIPLE SCLEROSIS
     Dosage: UNK, QD
     Route: 048

REACTIONS (11)
  - White blood cell count decreased [Unknown]
  - Constipation [Unknown]
  - Paraesthesia [Unknown]
  - Lymphopenia [Unknown]
  - Back pain [Unknown]
  - Bladder dysfunction [Unknown]
  - Pain [Unknown]
  - Pelvic pain [Unknown]
  - Balance disorder [Unknown]
  - Muscular weakness [Unknown]
  - Gait disturbance [Unknown]

NARRATIVE: CASE EVENT DATE: 20160314
